FAERS Safety Report 21086936 (Version 1)
Quarter: 2022Q3

REPORT INFORMATION
  Report Type: Spontaneous
  Country: US (occurrence: None)
  Receive Date: 20220714
  Receipt Date: 20220714
  Transmission Date: 20221027
  Serious: Yes (Other)
  Sender: FDA-Public Use
  Company Number: None

PATIENT
  Age: 25 Year
  Sex: Male
  Weight: 87.54 kg

DRUGS (5)
  1. CLOBAZAM [Suspect]
     Active Substance: CLOBAZAM
     Dosage: DOSAGE: 2 PILLS, AT BEDTIME
     Route: 048
     Dates: start: 20220710
  2. DEPAKOTE [Concomitant]
  3. TRILEPTAL [Concomitant]
     Active Substance: OXCARBAZEPINE
  4. FYCOMPA [Concomitant]
     Active Substance: PERAMPANEL
  5. ONFI [Concomitant]
     Active Substance: CLOBAZAM

REACTIONS (1)
  - Oedema [None]

NARRATIVE: CASE EVENT DATE: 20220630
